FAERS Safety Report 5195401-0 (Version None)
Quarter: 2006Q4

REPORT INFORMATION
  Report Type: 
  Country: None (occurrence: None)
  Receive Date: 20061025
  Receipt Date: 20060914
  Transmission Date: 20070319
  Serious: Yes (Disabling)
  Sender: FDA-Public Use
  Company Number: 2006IP000041

PATIENT
  Age: 50 Year
  Sex: Male
  Weight: 81.6475 kg

DRUGS (4)
  1. XIBROM [Suspect]
     Indication: VITRECTOMY
     Dosage: 1 GTT;BID;OPH
     Route: 047
     Dates: start: 20060420, end: 20060720
  2. PRED FORTE (PREDNISOLONE ACETATE OPHTHALMIC SUSPENSION, USP) 1% [Suspect]
     Indication: PROPHYLAXIS
     Dosage: OPH
     Route: 047
     Dates: start: 20051201
  3. MAXITROL [Suspect]
     Indication: PROPHYLAXIS
     Dosage: 1 GTT;BID;OPH
     Route: 047
     Dates: start: 20060626, end: 20060726
  4. ACULAR [Concomitant]

REACTIONS (3)
  - CORNEAL EPITHELIUM DEFECT [None]
  - IMPAIRED HEALING [None]
  - MACULOPATHY [None]
